FAERS Safety Report 8213435-6 (Version None)
Quarter: 2012Q1

REPORT INFORMATION
  Report Type: 
  Country: None (occurrence: None)
  Receive Date: 20120315
  Receipt Date: 20120302
  Transmission Date: 20120608
  Serious: Yes (Other)
  Sender: FDA-Public Use
  Company Number: PHHY2012FR019701

PATIENT
  Age: 9 Year
  Sex: Female

DRUGS (4)
  1. COLCHICINE [Interacting]
     Dosage: 1 MG, UNK
  2. COLCHICINE [Interacting]
     Dosage: 0.5 MG, UNK
  3. ILARIS [Suspect]
     Indication: FAMILIAL MEDITERRANEAN FEVER
     Dosage: UNK , UNK
     Dates: start: 20110501
  4. CODENFAN [Concomitant]

REACTIONS (4)
  - DRUG INTERACTION [None]
  - MYALGIA [None]
  - BLOOD LACTATE DEHYDROGENASE INCREASED [None]
  - FALL [None]
